FAERS Safety Report 7039904-2 (Version None)
Quarter: 2010Q4

REPORT INFORMATION
  Report Type: 
  Country: None (occurrence: None)
  Receive Date: 20101012
  Receipt Date: 20101004
  Transmission Date: 20110411
  Serious: Yes (Other)
  Sender: FDA-Public Use
  Company Number: US-PFIZER INC-2010126327

PATIENT
  Sex: Female
  Weight: 75 kg

DRUGS (7)
  1. CHANTIX [Suspect]
     Indication: SMOKING CESSATION THERAPY
     Dosage: UNK
     Route: 048
     Dates: start: 20070101, end: 20070101
  2. CHANTIX [Suspect]
     Dosage: 1 MG, 2X/DAY
     Dates: start: 20100701, end: 20100101
  3. CHANTIX [Suspect]
     Dosage: 1 MG, 1X/DAY
     Route: 048
     Dates: start: 20100101, end: 20100101
  4. CHANTIX [Suspect]
     Dosage: 0.5 MG, 2X/DAY
     Route: 048
     Dates: start: 20100101, end: 20100101
  5. CHANTIX [Suspect]
     Dosage: 0.5 MG, 1X/DAY
     Route: 048
     Dates: start: 20100101, end: 20100926
  6. NORCO [Concomitant]
     Dosage: UNK, 4X/DAY
  7. XOPENEX [Concomitant]
     Indication: ASTHMA
     Dosage: UNK

REACTIONS (11)
  - ABNORMAL DREAMS [None]
  - ANXIETY [None]
  - BLOOD GLUCOSE INCREASED [None]
  - CHEST DISCOMFORT [None]
  - CONSTIPATION [None]
  - DYSPEPSIA [None]
  - FATIGUE [None]
  - INSOMNIA [None]
  - IRRITABILITY [None]
  - MOOD SWINGS [None]
  - PALPITATIONS [None]
